FAERS Safety Report 19403526 (Version 1)
Quarter: 2021Q2

REPORT INFORMATION
  Report Type: Spontaneous
  Country: US (occurrence: US)
  Receive Date: 20210610
  Receipt Date: 20210610
  Transmission Date: 20210717
  Serious: Yes (Other)
  Sender: FDA-Public Use
  Company Number: None

PATIENT
  Age: 44 Year
  Sex: Female
  Weight: 53.1 kg

DRUGS (4)
  1. CELEBREX [Concomitant]
     Active Substance: CELECOXIB
  2. BUPROPION HYDROCHLORIDE XL [Suspect]
     Active Substance: BUPROPION HYDROCHLORIDE
     Indication: SEASONAL AFFECTIVE DISORDER
     Dosage: ?          QUANTITY:1 TABLET(S);?
     Route: 048
     Dates: start: 20210517, end: 20210531
  3. NUVARING [Concomitant]
     Active Substance: ETHINYL ESTRADIOL\ETONOGESTREL
  4. PREGNENOLONE 10 MG [Concomitant]

REACTIONS (9)
  - Suicidal ideation [None]
  - Fear [None]
  - Drug ineffective [None]
  - Alcoholism [None]
  - Drug dependence [None]
  - Middle insomnia [None]
  - Abnormal dreams [None]
  - Withdrawal syndrome [None]
  - Motion sickness [None]

NARRATIVE: CASE EVENT DATE: 20210531
